FAERS Safety Report 13497477 (Version 1)
Quarter: 2017Q2

REPORT INFORMATION
  Report Type: Spontaneous
  Country: US (occurrence: US)
  Receive Date: 20170428
  Receipt Date: 20170428
  Transmission Date: 20170830
  Serious: No
  Sender: FDA-Public Use
  Company Number: US-009507513-1704USA008611

PATIENT
  Age: 82 Year
  Sex: Female

DRUGS (2)
  1. STERILE DILUENT [Suspect]
     Active Substance: WATER
  2. ZOSTAVAX [Suspect]
     Active Substance: VARICELLA-ZOSTER VIRUS STRAIN OKA/MERCK LIVE ANTIGEN
     Indication: PROPHYLAXIS
     Route: 042
     Dates: start: 20160911, end: 20160911

REACTIONS (2)
  - Incorrect route of drug administration [Unknown]
  - Pruritus [Not Recovered/Not Resolved]

NARRATIVE: CASE EVENT DATE: 20160911
